FAERS Safety Report 8169256-6 (Version None)
Quarter: 2012Q1

REPORT INFORMATION
  Report Type: 
  Country: None (occurrence: None)
  Receive Date: 20120228
  Receipt Date: 20120216
  Transmission Date: 20120608
  Serious: Yes (Other)
  Sender: FDA-Public Use
  Company Number: US-ASTRAZENECA-2011SE64385

PATIENT
  Age: 97 Year
  Sex: Male
  Weight: 59 kg

DRUGS (13)
  1. TOPROL-XL [Interacting]
     Indication: ARTERIAL DISORDER
     Route: 048
  2. TOPROL-XL [Interacting]
     Route: 048
  3. VITAMIN TAB [Concomitant]
  4. OCUVITE OTC [Concomitant]
  5. AVODART [Concomitant]
  6. TOPROL-XL [Interacting]
     Indication: HEART RATE INCREASED
     Route: 048
  7. OCUVITE OTC [Concomitant]
  8. NEXIUM [Suspect]
     Indication: DYSPHAGIA
     Route: 048
  9. ABADART [Concomitant]
     Indication: PROSTATOMEGALY
  10. TOPROL-XL [Interacting]
     Route: 048
  11. ASPIRIN [Concomitant]
  12. TEA [Interacting]
     Route: 065
  13. ASPIRIN [Concomitant]
     Indication: THROMBOSIS PROPHYLAXIS

REACTIONS (4)
  - LABELLED DRUG-FOOD INTERACTION MEDICATION ERROR [None]
  - OFF LABEL USE [None]
  - PHOTOPSIA [None]
  - ARTERIAL INJURY [None]
